FAERS Safety Report 9379727 (Version 1)
Quarter: 2013Q3

REPORT INFORMATION
  Report Type: Spontaneous
  Country: IT (occurrence: IT)
  Receive Date: 20130702
  Receipt Date: 20130702
  Transmission Date: 20140515
  Serious: Yes (Other)
  Sender: FDA-Public Use
  Company Number: IT-TEVA-416253ISR

PATIENT
  Age: 72 Year
  Sex: Female
  Weight: 55 kg

DRUGS (5)
  1. OXALIPLATINO TEVA [Suspect]
     Indication: COLON CANCER
     Dosage: 206.7 MILLIGRAM DAILY; CONCENTRATE FOR SOLUTION FOR INFUSION
     Route: 042
     Dates: start: 20130509, end: 20130605
  2. XELODA [Suspect]
     Indication: COLON CANCER
     Dosage: 3180 MILLIGRAM DAILY;
     Route: 048
     Dates: start: 20130509, end: 20130523
  3. ONDANSETRONE HIKMA [Concomitant]
     Dosage: 8 MILLIGRAM DAILY;
     Route: 042
     Dates: start: 20130509, end: 20130605
  4. SOLDESAM [Concomitant]
     Dosage: 8 MILLIGRAM DAILY;
     Route: 042
     Dates: start: 20130509, end: 20130605
  5. RANIDIL [Concomitant]
     Dosage: 50 MILLIGRAM DAILY;
     Route: 042
     Dates: start: 20130509, end: 20130605

REACTIONS (3)
  - Fatigue [Recovering/Resolving]
  - Muscle spasms [Recovering/Resolving]
  - Visual acuity reduced [Recovering/Resolving]
